APPROVED DRUG PRODUCT: GLYBURIDE
Active Ingredient: GLYBURIDE
Strength: 2.5MG
Dosage Form/Route: TABLET;ORAL
Application: A076257 | Product #002 | TE Code: AB1
Applicant: EPIC PHARMA LLC
Approved: Jun 27, 2002 | RLD: No | RS: No | Type: RX